APPROVED DRUG PRODUCT: ANGIOMAX
Active Ingredient: BIVALIRUDIN
Strength: 250MG/VIAL
Dosage Form/Route: INJECTABLE;INTRAVENOUS
Application: N020873 | Product #001 | TE Code: AP
Applicant: SANDOZ INC
Approved: Dec 15, 2000 | RLD: Yes | RS: Yes | Type: RX

PATENTS:
Patent 7582727 | Expires: Jul 27, 2028
Patent 7598343 | Expires: Jul 27, 2028
Patent 7582727*PED | Expires: Jan 27, 2029
Patent 7598343*PED | Expires: Jan 27, 2029